FAERS Safety Report 8318652-2 (Version None)
Quarter: 2012Q2

REPORT INFORMATION
  Report Type: 
  Country: None (occurrence: None)
  Receive Date: 20120427
  Receipt Date: 20120423
  Transmission Date: 20120825
  Serious: Yes (Life-Threatening, Hospitalization)
  Sender: FDA-Public Use
  Company Number: US-ASTRAZENECA-2012SE18247

PATIENT
  Age: 43 Year
  Sex: Male
  Weight: 114.3 kg

DRUGS (11)
  1. UNSPECIFIED OTHER MEDICATIONS [Suspect]
  2. CRESTOR [Suspect]
     Route: 048
  3. PRILOSEC [Suspect]
     Route: 048
  4. NEXIUM [Suspect]
     Indication: GASTRITIS EROSIVE
     Route: 048
  5. ZETIA [Concomitant]
     Indication: BLOOD CHOLESTEROL
  6. ULOROIC [Concomitant]
  7. RISPERDAL [Concomitant]
  8. SEROQUEL [Suspect]
     Route: 048
     Dates: start: 20060101
  9. NEXIUM [Suspect]
     Indication: HYPERCHLORHYDRIA
     Route: 048
  10. LITHIUM CARBONATE [Concomitant]
  11. TRICOR [Concomitant]

REACTIONS (18)
  - INSOMNIA [None]
  - GASTRITIS EROSIVE [None]
  - SPEECH DISORDER [None]
  - EMOTIONAL DISORDER [None]
  - PARANOIA [None]
  - HYPERCHLORHYDRIA [None]
  - PNEUMONIA [None]
  - DISORIENTATION [None]
  - OVERDOSE [None]
  - MENTAL IMPAIRMENT [None]
  - MENTAL DISORDER [None]
  - ADVERSE EVENT [None]
  - GASTROOESOPHAGEAL REFLUX DISEASE [None]
  - AGGRESSION [None]
  - ANGER [None]
  - APPARENT DEATH [None]
  - ARTERIAL THROMBOSIS LIMB [None]
  - AGITATION [None]
